FAERS Safety Report 22309368 (Version 2)
Quarter: 2023Q2

REPORT INFORMATION
  Report Type: Report from Study
  Country: DE (occurrence: None)
  Receive Date: 20230511
  Receipt Date: 20230601
  Transmission Date: 20230721
  Serious: Yes (Hospitalization)
  Sender: FDA-Public Use
  Company Number: DE-Eisai Medical Research-EC-2022-128975

PATIENT
  Age: 74 Year
  Sex: Male
  Weight: 93.6 kg

DRUGS (8)
  1. LENVATINIB [Suspect]
     Active Substance: LENVATINIB
     Indication: Hepatocellular carcinoma
     Route: 048
     Dates: start: 20220714, end: 20221102
  2. LENVATINIB [Suspect]
     Active Substance: LENVATINIB
     Dosage: STARTING AT 12 MG, FLUCTUATED DOSAGE
     Route: 048
     Dates: start: 20221103
  3. PEMBROLIZUMAB [Suspect]
     Active Substance: PEMBROLIZUMAB
     Indication: Hepatocellular carcinoma
     Dosage: VIBOSTOLIMAB (MK-7684) 200MG + PEMBROLIZUMAB (MK-3475) 200MG
     Route: 042
     Dates: start: 20220714, end: 20221013
  4. VIBOSTOLIMAB [Suspect]
     Active Substance: VIBOSTOLIMAB
     Dosage: VIBOSTOLIMAB (MK-7684) 200MG + PEMBROLIZUMAB (MK-3475) 200MG
     Route: 042
     Dates: start: 20221103
  5. ASPIRIN [Concomitant]
     Active Substance: ASPIRIN
     Dates: start: 201001
  6. CANDESARTAN [Concomitant]
     Active Substance: CANDESARTAN
     Dates: start: 201001
  7. AMLODIPINE [Concomitant]
     Active Substance: AMLODIPINE BESYLATE
     Dates: start: 201001
  8. METHYLPREDNISOLONE ACEPONATE [Concomitant]
     Active Substance: METHYLPREDNISOLONE ACEPONATE
     Dates: start: 20220825, end: 20221123

REACTIONS (1)
  - Stomatitis [Recovered/Resolved]

NARRATIVE: CASE EVENT DATE: 20221102
